FAERS Safety Report 9768966 (Version 3)
Quarter: 2014Q1

REPORT INFORMATION
  Report Type: Spontaneous
  Country: CA (occurrence: CA)
  Receive Date: 20131218
  Receipt Date: 20140220
  Transmission Date: 20141002
  Serious: Yes (Hospitalization)
  Sender: FDA-Public Use
  Company Number: CA-AMGEN-CANSP2013086752

PATIENT
  Age: 77 Year
  Sex: Female

DRUGS (21)
  1. PROLIA [Suspect]
     Indication: OSTEOPOROSIS POSTMENOPAUSAL
     Dosage: 60 MG, Q6MO
     Route: 058
     Dates: start: 20120525
  2. ATIVAN [Concomitant]
     Dosage: 1 MG, BID PRN
     Route: 048
  3. GEN-BUDESONIDE AQ [Concomitant]
     Dosage: 64 MCG/ACT, 2 SPRAYS IN EACH NOSTRIL BID
  4. CALCIUM [Concomitant]
     Dosage: 500 MG, BID
     Route: 048
  5. COVERSYL                           /00790702/ [Concomitant]
     Dosage: 4 MG, QD
     Route: 048
  6. FOLIC ACID [Concomitant]
     Dosage: 1 UNK, QD
     Route: 048
  7. IMOVANE [Concomitant]
     Dosage: 5 MG, 1 QHS PRN
     Route: 048
  8. METOPROLOL [Concomitant]
     Dosage: 50 MG, ONE BID
     Route: 048
  9. NORVASC [Concomitant]
     Dosage: 1.5 TABLET OF 5 MG, QD
     Route: 048
  10. PANTOLOC                           /01263204/ [Concomitant]
     Dosage: 40 MG, ONE TABLET BID
     Route: 048
  11. PLAQUENIL                          /00072602/ [Concomitant]
     Dosage: 200 MG, QD
     Route: 048
  12. REMERON RD [Concomitant]
     Dosage: 45 MG, QHS
     Route: 048
  13. SPIRIVA [Concomitant]
     Dosage: 18 MUG, ONE PUFF
  14. SYMBICORT [Concomitant]
     Dosage: 1-2 PUFFS QID PRN (330)
  15. THIAMINE HCL [Concomitant]
     Dosage: 100 MG, QD
     Route: 048
  16. TYLENOL                            /00020001/ [Concomitant]
     Dosage: 1-2 TABLET C4H PRN
     Route: 048
  17. VITAMIN B12                        /00056201/ [Concomitant]
     Dosage: 1000 MUG, QD
     Route: 048
  18. VITAMIN D3 [Concomitant]
     Dosage: 400 IU, BID
     Route: 048
  19. SEROQUEL [Concomitant]
     Dosage: 25 MG, 4 QHS
     Route: 048
  20. ZOSTAVAX [Concomitant]
     Dosage: 19400 UNT/0.65ML SOLR , 1 DOSE
     Route: 030
  21. NITROLINGUAL [Concomitant]
     Dosage: 0.4 MG,  1 SPRAY Q5MIN PRN, MAX 3 SPRAYS

REACTIONS (2)
  - Clostridium difficile colitis [Recovered/Resolved]
  - Dehydration [Recovered/Resolved]
